FAERS Safety Report 11439620 (Version 1)
Quarter: 2015Q3

REPORT INFORMATION
  Report Type: Spontaneous
  Country: US (occurrence: US)
  Receive Date: 20150901
  Receipt Date: 20150901
  Transmission Date: 20151125
  Serious: No
  Sender: FDA-Public Use
  Company Number: US-ROCHE-1055803

PATIENT
  Sex: Female

DRUGS (3)
  1. PEGASYS [Suspect]
     Active Substance: PEGINTERFERON ALFA-2A
     Indication: CHRONIC HEPATITIS C
     Route: 058
     Dates: start: 20111014
  2. RIBASPHERE RIBAPAK [Suspect]
     Active Substance: RIBAVIRIN
     Indication: CHRONIC HEPATITIS C
     Dosage: IN DIVIDED DOESES
     Route: 048
     Dates: start: 20111014
  3. BOCEPREVIR [Suspect]
     Active Substance: BOCEPREVIR
     Indication: CHRONIC HEPATITIS C
     Route: 065
     Dates: start: 20111210

REACTIONS (9)
  - Dizziness [Unknown]
  - Tooth fracture [Unknown]
  - Alopecia [Unknown]
  - Gingival pain [Unknown]
  - Weight increased [Unknown]
  - Red blood cell count decreased [Unknown]
  - Toothache [Unknown]
  - Hyperthyroidism [Unknown]
  - Carpal tunnel syndrome [Unknown]
